FAERS Safety Report 24332174 (Version 1)
Quarter: 2024Q3

REPORT INFORMATION
  Report Type: Spontaneous
  Country: GB (occurrence: GB)
  Receive Date: 20240918
  Receipt Date: 20240918
  Transmission Date: 20241016
  Serious: Yes (Hospitalization)
  Sender: ROCHE
  Company Number: GB-ROCHE-10000080727

PATIENT
  Age: 36 Year
  Weight: 120 kg

DRUGS (2)
  1. POLATUZUMAB VEDOTIN [Suspect]
     Active Substance: POLATUZUMAB VEDOTIN
     Indication: Diffuse large B-cell lymphoma
     Route: 065
     Dates: start: 20240724
  2. RITUXIMAB [Suspect]
     Active Substance: RITUXIMAB
     Indication: Product used for unknown indication
     Route: 065

REACTIONS (7)
  - Dyspnoea [Unknown]
  - Swelling [Unknown]
  - Cough [Unknown]
  - Dysphagia [Unknown]
  - Fatigue [Unknown]
  - Nausea [Unknown]
  - Neuralgia [Unknown]
